FAERS Safety Report 9105374 (Version 1)
Quarter: 2013Q1

REPORT INFORMATION
  Report Type: Spontaneous
  Country: FR (occurrence: FR)
  Receive Date: 20130220
  Receipt Date: 20130220
  Transmission Date: 20140127
  Serious: Yes (Hospitalization)
  Sender: FDA-Public Use
  Company Number: FR-BRISTOL-MYERS SQUIBB COMPANY-17378860

PATIENT
  Age: 86 Year
  Sex: Female

DRUGS (8)
  1. COUMADINE [Suspect]
     Route: 048
     Dates: end: 20120617
  2. LASILIX [Concomitant]
  3. ALDACTONE [Concomitant]
  4. COVERSYL [Concomitant]
  5. OXYCONTIN [Concomitant]
  6. SERETIDE [Concomitant]
     Route: 045
  7. LEXOMIL [Concomitant]
  8. FORLAX [Concomitant]

REACTIONS (5)
  - Rectal haemorrhage [Recovered/Resolved]
  - Overdose [Unknown]
  - Malnutrition [Unknown]
  - Haematoma [Unknown]
  - Skin fragility [Unknown]
